FAERS Safety Report 7122045-3 (Version None)
Quarter: 2010Q4

REPORT INFORMATION
  Report Type: 
  Country: None (occurrence: None)
  Receive Date: 20101124
  Receipt Date: 20101116
  Transmission Date: 20110411
  Serious: Yes (Other)
  Sender: FDA-Public Use
  Company Number: B0681904A

PATIENT
  Sex: Female

DRUGS (1)
  1. SERETIDE [Suspect]
     Route: 065

REACTIONS (3)
  - ASTHMA [None]
  - DEVICE MALFUNCTION [None]
  - PRODUCT QUALITY ISSUE [None]
